FAERS Safety Report 5709305-5 (Version None)
Quarter: 2008Q2

REPORT INFORMATION
  Report Type: 
  Country: None (occurrence: None)
  Receive Date: 20080418
  Receipt Date: 20080408
  Transmission Date: 20081010
  Serious: Yes (Hospitalization)
  Sender: FDA-Public Use
  Company Number: BR-ELI_LILLY_AND_COMPANY-BR200804002123

PATIENT
  Sex: Female

DRUGS (5)
  1. FORTEO [Suspect]
     Indication: OSTEOPOROSIS
     Dosage: 20 UG, DAILY (1/D)
     Route: 058
  2. FORASEQ [Concomitant]
     Indication: EMPHYSEMA
     Dosage: UNK, UNKNOWN
     Route: 065
  3. BEROTEC [Concomitant]
     Indication: EMPHYSEMA
     Dosage: UNK, UNKNOWN
     Route: 065
  4. ATROVENT [Concomitant]
     Indication: EMPHYSEMA
     Dosage: UNK, UNKNOWN
     Route: 065
  5. CAPTOPRIL [Concomitant]
     Indication: HYPERTENSION
     Dosage: UNK, UNKNOWN
     Route: 065

REACTIONS (3)
  - FALL [None]
  - PAIN [None]
  - SPINAL FRACTURE [None]
